FAERS Safety Report 10181692 (Version 1)
Quarter: 2014Q2

REPORT INFORMATION
  Report Type: Spontaneous
  Country: GB (occurrence: GB)
  Receive Date: 20140519
  Receipt Date: 20140519
  Transmission Date: 20141212
  Serious: Yes (Other)
  Sender: FDA-Public Use
  Company Number: GB-MYLANLABS-2014S1010520

PATIENT
  Age: 49 Year
  Sex: Female

DRUGS (3)
  1. MELOXICAM [Suspect]
     Indication: COSTOCHONDRITIS
     Route: 048
     Dates: start: 20140414, end: 20140423
  2. CLIMAGEST [Concomitant]
  3. LANSOPRAZOLE [Concomitant]

REACTIONS (1)
  - Vision blurred [Not Recovered/Not Resolved]
